FAERS Safety Report 20257802 (Version 7)
Quarter: 2022Q2

REPORT INFORMATION
  Report Type: Spontaneous
  Country: US (occurrence: US)
  Receive Date: 20211230
  Receipt Date: 20220620
  Transmission Date: 20220721
  Serious: Yes (Other)
  Sender: FDA-Public Use
  Company Number: US-ALXN-A202114262

PATIENT
  Sex: Female

DRUGS (1)
  1. SOLIRIS [Suspect]
     Active Substance: ECULIZUMAB
     Indication: Myasthenia gravis
     Dosage: 1200 MG, Q2W
     Route: 042
     Dates: start: 202002

REACTIONS (9)
  - Cellulitis [Unknown]
  - Blood pressure systolic increased [Unknown]
  - Diplopia [Unknown]
  - Eyelid ptosis [Unknown]
  - Obesity [Unknown]
  - Urine output decreased [Recovered/Resolved]
  - Headache [Unknown]
  - Nasopharyngitis [Unknown]
  - Influenza [Unknown]
